FAERS Safety Report 23898797 (Version 2)
Quarter: 2024Q2

REPORT INFORMATION
  Report Type: Spontaneous
  Country: HR (occurrence: HR)
  Receive Date: 20240525
  Receipt Date: 20240607
  Transmission Date: 20240716
  Serious: Yes (Hospitalization)
  Sender: FDA-Public Use
  Company Number: HR-ABBVIE-5771285

PATIENT
  Age: 0 Year
  Sex: Male

DRUGS (3)
  1. SKYRIZI [Suspect]
     Active Substance: RISANKIZUMAB-RZAA
     Indication: Maternal exposure timing unspecified
     Route: 064
  2. AMPICILLIN [Concomitant]
     Active Substance: AMPICILLIN
     Indication: Product used for unknown indication
     Dates: start: 20240103
  3. GENTAMICIN [Concomitant]
     Active Substance: GENTAMICIN
     Indication: Product used for unknown indication
     Dates: start: 20240103

REACTIONS (7)
  - Neonatal infection [Recovered/Resolved]
  - Papule [Recovered/Resolved]
  - Cardiac murmur [Recovered/Resolved]
  - Foetal exposure during pregnancy [Recovered/Resolved]
  - Inflammatory marker increased [Recovered/Resolved]
  - Rash papular [Recovered/Resolved]
  - Urine abnormality [Unknown]

NARRATIVE: CASE EVENT DATE: 20240101
